FAERS Safety Report 6844900-1 (Version None)
Quarter: 2010Q3

REPORT INFORMATION
  Report Type: 
  Country: None (occurrence: None)
  Receive Date: 20100713
  Receipt Date: 20100629
  Transmission Date: 20110219
  Serious: Yes (Hospitalization)
  Sender: FDA-Public Use
  Company Number: A-US2010-37155

PATIENT
  Age: 58 Year
  Sex: Female

DRUGS (5)
  1. TRACLEER [Suspect]
     Indication: PULMONARY ARTERIAL HYPERTENSION
     Dosage: UNK MG, UNK
     Dates: start: 20100113
  2. REVATIO [Concomitant]
  3. TREPROSTINIL (TREPROSTINIL) [Concomitant]
  4. COUMADIN [Concomitant]
  5. TADALAFIL (TADALAFIL) [Concomitant]

REACTIONS (1)
  - ASTHMA [None]
